FAERS Safety Report 20519226 (Version 2)
Quarter: 2022Q1

REPORT INFORMATION
  Report Type: Report from Study
  Country: TR (occurrence: TR)
  Receive Date: 20220225
  Receipt Date: 20220228
  Transmission Date: 20220423
  Serious: Yes (Death, Other)
  Sender: FDA-Public Use
  Company Number: TR-AMGEN-TURNI2022033603

PATIENT
  Age: 65 Year
  Sex: Male

DRUGS (2)
  1. AMG-510 [Suspect]
     Active Substance: AMG-510
     Indication: Lung cancer metastatic
     Dosage: 4 DOSAGE FORM, QD
     Route: 048
     Dates: start: 20211119
  2. CISPLATIN;GEMCITABINE [Concomitant]
     Dosage: UNK
     Dates: start: 20210730, end: 20211129

REACTIONS (1)
  - Death [Fatal]

NARRATIVE: CASE EVENT DATE: 20220215
